FAERS Safety Report 4837227-0 (Version None)
Quarter: 2005Q4

REPORT INFORMATION
  Report Type: 
  Country: None (occurrence: None)
  Receive Date: 20051122
  Receipt Date: 20051108
  Transmission Date: 20060501
  Serious: Yes (Hospitalization)
  Sender: FDA-Public Use
  Company Number: A-US2005-10967

PATIENT
  Age: 54 Year
  Sex: Female

DRUGS (9)
  1. TRACLEER [Suspect]
     Indication: PULMONARY HYPERTENSION
     Dosage: SEE IMAGE
     Route: 048
     Dates: start: 20041001, end: 20041101
  2. TRACLEER [Suspect]
     Indication: PULMONARY HYPERTENSION
     Dosage: SEE IMAGE
     Route: 048
     Dates: end: 20050606
  3. TRACLEER [Suspect]
     Indication: PULMONARY HYPERTENSION
     Dosage: SEE IMAGE
     Route: 048
     Dates: start: 20041101
  4. FLOLAN [Concomitant]
  5. COUMADIN [Concomitant]
  6. ALDACTONE [Concomitant]
  7. ZOLOFT [Concomitant]
  8. POTASSIUM(POTASSIUM) [Concomitant]
  9. DIGOXIN [Concomitant]

REACTIONS (12)
  - AUTOIMMUNE HEPATITIS [None]
  - BILIARY COLIC [None]
  - CHOLESTASIS [None]
  - DRUG INEFFECTIVE [None]
  - EXERCISE TOLERANCE DECREASED [None]
  - FATIGUE [None]
  - FLUSHING [None]
  - HEADACHE [None]
  - HEPATIC ENCEPHALOPATHY [None]
  - LIVER DISORDER [None]
  - NASAL CONGESTION [None]
  - RHINITIS [None]
